FAERS Safety Report 5093187-1 (Version None)
Quarter: 2006Q3

REPORT INFORMATION
  Report Type: 
  Country: None (occurrence: None)
  Receive Date: 20060825
  Receipt Date: 20060814
  Transmission Date: 20061208
  Serious: Yes (Other)
  Sender: FDA-Public Use
  Company Number: HQWYE103414MAR05

PATIENT
  Age: 53 Year
  Sex: Female
  Weight: 70.1 kg

DRUGS (10)
  1. EFFEXOR XR [Suspect]
     Indication: DEPRESSION
     Dosage: 150 MG 1X PER 1 DAY, ORAL
     Route: 048
     Dates: start: 20050305, end: 20050301
  2. EFFEXOR XR [Suspect]
     Indication: HOT FLUSH
     Dosage: 150 MG 1X PER 1 DAY, ORAL
     Route: 048
     Dates: start: 20050305, end: 20050301
  3. EFFEXOR XR [Suspect]
     Indication: OFF LABEL USE
     Dosage: 150 MG 1X PER 1 DAY, ORAL
     Route: 048
     Dates: start: 20050305, end: 20050301
  4. PAXIL CR [Suspect]
     Indication: HOT FLUSH
     Dosage: 25 MG 1X PER 1 DAY
     Dates: end: 20050304
  5. PAXIL CR [Suspect]
     Indication: SOCIAL PHOBIA
     Dosage: 25 MG 1X PER 1 DAY
     Dates: end: 20050304
  6. PAXIL CR [Suspect]
     Indication: HOT FLUSH
     Dosage: 25 MG 1X PER 1 DAY
     Dates: start: 20050301
  7. PAXIL CR [Suspect]
     Indication: SOCIAL PHOBIA
     Dosage: 25 MG 1X PER 1 DAY
     Dates: start: 20050301
  8. ALAVERT [Concomitant]
  9. CALCIUM (CALCIUM) [Concomitant]
  10. CLONIDINE [Concomitant]

REACTIONS (23)
  - AGITATION [None]
  - CEREBRAL DISORDER [None]
  - COMMUNICATION DISORDER [None]
  - CONDITION AGGRAVATED [None]
  - CONFUSIONAL STATE [None]
  - CRYING [None]
  - DEPRESSION [None]
  - DIZZINESS [None]
  - DRUG INEFFECTIVE [None]
  - DRUG WITHDRAWAL SYNDROME [None]
  - DRY SKIN [None]
  - FEAR [None]
  - HYPOTHYROIDISM [None]
  - IMPAIRED WORK ABILITY [None]
  - LIBIDO INCREASED [None]
  - MIGRAINE [None]
  - NERVOUSNESS [None]
  - PARAESTHESIA [None]
  - PARANOIA [None]
  - PSYCHOTIC DISORDER [None]
  - SOCIAL AVOIDANT BEHAVIOUR [None]
  - SUICIDAL IDEATION [None]
  - UNEVALUABLE EVENT [None]
